FAERS Safety Report 11822165 (Version 1)
Quarter: 2015Q4

REPORT INFORMATION
  Report Type: Spontaneous
  Country: US (occurrence: US)
  Receive Date: 20151210
  Receipt Date: 20151210
  Transmission Date: 20160305
  Serious: No
  Sender: FDA-Public Use
  Company Number: US-JNJFOC-20150917175

PATIENT
  Age: 74 Year
  Sex: Male

DRUGS (3)
  1. CHISANDRA - ADAPTOGEN [Concomitant]
     Indication: LIVER DISORDER
  2. IMBRUVICA [Suspect]
     Active Substance: IBRUTINIB
     Indication: CHRONIC LYMPHOCYTIC LEUKAEMIA
     Route: 048
     Dates: start: 201505
  3. SILYBUM MARIANUM [Concomitant]
     Indication: LIVER DISORDER

REACTIONS (4)
  - Weight decreased [Recovered/Resolved]
  - Influenza [Recovered/Resolved]
  - Rash [Not Recovered/Not Resolved]
  - Mass [Not Recovered/Not Resolved]

NARRATIVE: CASE EVENT DATE: 201507
